FAERS Safety Report 9111468 (Version 2)
Quarter: 2014Q1

REPORT INFORMATION
  Report Type: Spontaneous
  Country: US (occurrence: US)
  Receive Date: 20130219
  Receipt Date: 20140213
  Transmission Date: 20141002
  Serious: No
  Sender: FDA-Public Use
  Company Number: US-BRISTOL-MYERS SQUIBB COMPANY-16963134

PATIENT
  Age: 46 Year
  Sex: Female

DRUGS (2)
  1. ORENCIA [Suspect]
     Indication: RHEUMATOID ARTHRITIS
     Dosage: LAST INF:27-AUG-2012
     Route: 042
     Dates: start: 201204, end: 201211
  2. ARAVA [Concomitant]

REACTIONS (2)
  - Hypersensitivity [Unknown]
  - Groin infection [Unknown]
